FAERS Safety Report 25166968 (Version 1)
Quarter: 2025Q2

REPORT INFORMATION
  Report Type: Spontaneous
  Country: FR (occurrence: FR)
  Receive Date: 20250407
  Receipt Date: 20250407
  Transmission Date: 20250717
  Serious: Yes (Life-Threatening, Hospitalization, Other)
  Sender: NOVARTIS
  Company Number: FR-002147023-NVSC2025FR056803

PATIENT
  Sex: Male
  Weight: 60 kg

DRUGS (2)
  1. LUTATHERA [Suspect]
     Active Substance: LUTETIUM OXODOTREOTIDE LU-177
     Indication: Product used for unknown indication
     Route: 050
     Dates: start: 20241114, end: 20241114
  2. LUTATHERA [Suspect]
     Active Substance: LUTETIUM OXODOTREOTIDE LU-177
     Route: 050
     Dates: start: 20250123, end: 20250123

REACTIONS (6)
  - Thrombocytopenia [Recovering/Resolving]
  - Metastases to spinal cord [Unknown]
  - Frontotemporal dementia [Unknown]
  - Amyotrophic lateral sclerosis [Unknown]
  - Cognitive disorder [Unknown]
  - General physical health deterioration [Unknown]
